FAERS Safety Report 6181972-4 (Version None)
Quarter: 2009Q2

REPORT INFORMATION
  Report Type: 
  Country: None (occurrence: None)
  Receive Date: 20090505
  Receipt Date: 20090420
  Transmission Date: 20091009
  Serious: Yes (Life-Threatening, Hospitalization, Disabling)
  Sender: FDA-Public Use
  Company Number: 430020M09USA

PATIENT
  Age: 81 Year
  Sex: Male

DRUGS (17)
  1. NOVANTRONE [Suspect]
     Indication: PROSTATE CANCER
     Dosage: 16 MG, 1 IN 21 DAYS, INTRAVENOUS (NOT OTHERWISE SPECIFIED)
     Route: 042
     Dates: start: 20080611, end: 20081008
  2. CETUXIMAB (CETUXIMAB) [Suspect]
     Indication: PROSTATE CANCER
     Dosage: 21.9048 MG, 1 IN 21 DAYS, INTRAVENOUS (NOT OTHERWISE SPECIFIED)
     Route: 042
     Dates: start: 20080611, end: 20081014
  3. AMIODARONE (AMIODARONE /00133101/) [Concomitant]
  4. ATENOLOL [Concomitant]
  5. COMPAZINE [Concomitant]
  6. VICODIN [Concomitant]
  7. MARINOL [Concomitant]
  8. NITROGLYCERIN [Concomitant]
  9. SENOKOT-S (SENOKOT-S) [Concomitant]
  10. SLOW-MAG (MAGNESIUM CHLORIDE ANHYDROUS) [Concomitant]
  11. ZOLOFT [Concomitant]
  12. PREDNISONE (PREDNISONE /00044701/) [Concomitant]
  13. LIPITOR [Concomitant]
  14. ASPIRIN [Concomitant]
  15. PRILOSEC [Concomitant]
  16. HUMALOG [Concomitant]
  17. DIOVAN [Concomitant]

REACTIONS (5)
  - ARTHRALGIA [None]
  - ASTHENIA [None]
  - DECREASED APPETITE [None]
  - PELVIC PAIN [None]
  - SYNCOPE [None]
